FAERS Safety Report 15157922 (Version 2)
Quarter: 2018Q3

REPORT INFORMATION
  Report Type: Spontaneous
  Country: US (occurrence: US)
  Receive Date: 20180718
  Receipt Date: 20180831
  Transmission Date: 20181010
  Serious: Yes (Other)
  Sender: FDA-Public Use
  Company Number: PHEH2018US029598

PATIENT
  Sex: Female

DRUGS (1)
  1. AFINITOR [Suspect]
     Active Substance: EVEROLIMUS
     Indication: BREAST CANCER FEMALE
     Dosage: 10 MG, QD
     Route: 048

REACTIONS (28)
  - Facial paralysis [Unknown]
  - Lymphocyte morphology abnormal [Unknown]
  - Aspartate aminotransferase increased [Unknown]
  - Oral discomfort [Unknown]
  - Heart rate increased [Unknown]
  - Antineutrophil cytoplasmic antibody decreased [Unknown]
  - Lymphocyte count decreased [Unknown]
  - Monocyte count increased [Unknown]
  - Metastases to bone [Unknown]
  - Body mass index increased [Unknown]
  - Mean cell haemoglobin increased [Unknown]
  - Pleural effusion [Unknown]
  - Alanine aminotransferase increased [Unknown]
  - Blood glucose increased [Unknown]
  - Mucosal inflammation [Unknown]
  - Asthenopia [Unknown]
  - Creatinine renal clearance abnormal [Unknown]
  - Mean cell volume increased [Unknown]
  - Hepatic mass [Unknown]
  - Hypertension [Unknown]
  - Anxiety [Unknown]
  - Pain in jaw [Unknown]
  - Malaise [Unknown]
  - Weight decreased [Unknown]
  - Fatigue [Unknown]
  - Chromaturia [Unknown]
  - Blood calcium increased [Unknown]
  - Basophil count increased [Unknown]
